FAERS Safety Report 18330045 (Version 1)
Quarter: 2020Q3

REPORT INFORMATION
  Report Type: Report from Study
  Country: ES (occurrence: ES)
  Receive Date: 20200930
  Receipt Date: 20200930
  Transmission Date: 20201103
  Serious: Yes (Other)
  Sender: FDA-Public Use
  Company Number: ES-TEVA-2020-ES-1833290

PATIENT
  Age: 83 Year
  Sex: Female

DRUGS (6)
  1. HIDROFEROL 0,266 MG SOLUCION ORAL , 10 AMPOLLAS BEBIBLES DE 1,5 ML [Concomitant]
     Active Substance: CALCIFEDIOL
     Dosage: 0.26 MCG
     Route: 048
     Dates: start: 20160902
  2. AMOXICILINA/ACIDO CLAVULANICO TEVAGEN 500 MG/125 MG COMPRIMIDOS RECUBI [Suspect]
     Active Substance: AMOXICILLIN\CLAVULANIC ACID
     Indication: INFECTION
     Dosage: 1 DOSAGE FORMS
     Route: 048
     Dates: start: 20200729, end: 20200807
  3. ADIRO 100 MG COMPRIMIDOS GASTRORRESISTENTES EFG, 30 COMPRIMIDOS (PVC? [Concomitant]
     Dosage: 100 MG
     Route: 048
     Dates: start: 20120228
  4. MASTICAL D  500 MG/ 800 UI COMPRIMIDOS MASTICABLES, 30 COMPRIMIDOS [Concomitant]
     Dosage: 1 DOSAGE FORMS
     Route: 048
     Dates: start: 20160902
  5. PANTOPRAZOL MABO 20 MG COMPRIMIDOS GASTRORRESISTENTES EFG , 28 COMPRIM [Concomitant]
     Dosage: 20 MG
     Route: 048
     Dates: start: 20200820
  6. ENALAPRIL RATIOPHARM 10 MG COMPRIMIDOS , 60 COMPRIMIDOS [Concomitant]
     Dosage: 10 MG
     Route: 048
     Dates: start: 20120415

REACTIONS (3)
  - Hypertransaminasaemia [Recovering/Resolving]
  - Urticaria [Recovering/Resolving]
  - Choluria [Recovering/Resolving]

NARRATIVE: CASE EVENT DATE: 20200810
